FAERS Safety Report 4989678-1 (Version None)
Quarter: 2006Q2

REPORT INFORMATION
  Report Type: 
  Country: None (occurrence: None)
  Receive Date: 20060426
  Receipt Date: 20060406
  Transmission Date: 20061013
  Serious: Yes (Hospitalization, Other)
  Sender: FDA-Public Use
  Company Number: US200604001260

PATIENT
  Sex: Male

DRUGS (10)
  1. HUMALOG PEN [Suspect]
     Indication: DIABETES MELLITUS
     Dates: start: 20010101
  2. HUMULIN 70/30 [Suspect]
     Indication: DIABETES MELLITUS
     Dates: start: 20010101
  3. PROGRAF /USA/ (TACROLIMUS) [Concomitant]
  4. PREDNISOLONE (PREDNISONE) [Concomitant]
  5. ATENOLOL [Concomitant]
  6. PREVACID [Concomitant]
  7. EFFEXOR [Concomitant]
  8. WELLBUTRIN [Concomitant]
  9. ZOCOR [Concomitant]
  10. MINOXIDIL /N/A/ (MINOXIDIL) [Concomitant]

REACTIONS (8)
  - ABDOMINAL PAIN [None]
  - BLOOD GLUCOSE DECREASED [None]
  - BLOOD GLUCOSE INCREASED [None]
  - HYPERSOMNIA [None]
  - INTESTINAL OBSTRUCTION [None]
  - PHARMACEUTICAL PRODUCT COMPLAINT [None]
  - SLEEP APNOEA SYNDROME [None]
  - SLEEP DISORDER [None]
